FAERS Safety Report 14566953 (Version 1)
Quarter: 2018Q1

REPORT INFORMATION
  Report Type: Report from Study
  Country: US (occurrence: US)
  Receive Date: 20180223
  Receipt Date: 20180223
  Transmission Date: 20180509
  Serious: Yes (Other)
  Sender: FDA-Public Use
  Company Number: US-AMGEN-USASL2018023033

PATIENT
  Age: 45 Year
  Sex: Female

DRUGS (1)
  1. PROLIA [Suspect]
     Active Substance: DENOSUMAB
     Indication: PRODUCT USED FOR UNKNOWN INDICATION
     Dosage: UNK
     Route: 065
     Dates: start: 2015

REACTIONS (7)
  - Myalgia [Unknown]
  - Bone pain [Unknown]
  - Chest pain [Recovering/Resolving]
  - Arthralgia [Unknown]
  - Osteitis [Unknown]
  - Limb operation [Unknown]
  - Gastric disorder [Unknown]

NARRATIVE: CASE EVENT DATE: 201710
